FAERS Safety Report 11631983 (Version 3)
Quarter: 2019Q3

REPORT INFORMATION
  Report Type: Spontaneous
  Country: JP (occurrence: JP)
  Receive Date: 20151015
  Receipt Date: 20190719
  Transmission Date: 20191004
  Serious: Yes (Death, Hospitalization)
  Sender: FDA-Public Use
  Company Number: JP-ACTELION-A-CH2015-125415

PATIENT
  Age: 67 Year
  Sex: Female

DRUGS (11)
  1. FAMOTIDINE. [Concomitant]
     Active Substance: FAMOTIDINE
  2. NEORAL [Concomitant]
     Active Substance: CYCLOSPORINE
  3. ZYLORIC [Concomitant]
     Active Substance: ALLOPURINOL
  4. AMBRISENTAN [Concomitant]
     Active Substance: AMBRISENTAN
  5. PREDNISOLONE. [Concomitant]
     Active Substance: PREDNISOLONE
  6. OXYGEN. [Concomitant]
     Active Substance: OXYGEN
  7. NESINA [Concomitant]
     Active Substance: ALOGLIPTIN BENZOATE
  8. OPSUMIT [Suspect]
     Active Substance: MACITENTAN
     Indication: PULMONARY ARTERIAL HYPERTENSION
     Dosage: 10 MG, OD
     Route: 048
     Dates: start: 20150703, end: 20150915
  9. LIPITOR [Concomitant]
     Active Substance: ATORVASTATIN CALCIUM
  10. SPIRONOLACTONE. [Concomitant]
     Active Substance: SPIRONOLACTONE
  11. FUROSEMIDE. [Concomitant]
     Active Substance: FUROSEMIDE

REACTIONS (7)
  - Infection [Unknown]
  - Interstitial lung disease [Not Recovered/Not Resolved]
  - Gamma-glutamyltransferase increased [Unknown]
  - Sudden death [Fatal]
  - Pulmonary arterial hypertension [Not Recovered/Not Resolved]
  - Condition aggravated [Not Recovered/Not Resolved]
  - Nasopharyngitis [Unknown]

NARRATIVE: CASE EVENT DATE: 2015
